FAERS Safety Report 14759181 (Version 2)
Quarter: 2018Q2

REPORT INFORMATION
  Report Type: Spontaneous
  Country: US (occurrence: US)
  Receive Date: 20180413
  Receipt Date: 20180502
  Transmission Date: 20180711
  Serious: No
  Sender: FDA-Public Use
  Company Number: US-B.I. PHARMACEUTICALS,INC./RIDGEFIELD-2018-BI-019688

PATIENT
  Age: 83 Year
  Sex: Female

DRUGS (1)
  1. COMBIVENT [Suspect]
     Active Substance: ALBUTEROL SULFATE\IPRATROPIUM BROMIDE
     Indication: PNEUMONIA
     Dosage: STRENGTH:20MCG/100 MCG;FORMULATION:INHALATIONSPRAYADMINISTRATIONCORRECT?YESACTIONTAKENDOSENOTCHANGED
     Route: 055
     Dates: start: 20180404, end: 20180410

REACTIONS (2)
  - Physical product label issue [Unknown]
  - Off label use [Unknown]

NARRATIVE: CASE EVENT DATE: 20180404
